FAERS Safety Report 4341871-7 (Version None)
Quarter: 2004Q2

REPORT INFORMATION
  Report Type: 
  Country: None (occurrence: None)
  Receive Date: 20040415
  Receipt Date: 20040329
  Transmission Date: 20050107
  Serious: Yes (Hospitalization)
  Sender: FDA-Public Use
  Company Number: USA040363302

PATIENT
  Age: 59 Year
  Sex: Female
  Weight: 50 kg

DRUGS (2)
  1. HUMULIN N [Suspect]
     Indication: DIABETES MELLITUS
     Dosage: 5 U/2 DAY
  2. AVANDIA [Concomitant]

REACTIONS (8)
  - ACTIVITIES OF DAILY LIVING IMPAIRED [None]
  - CEREBRAL HAEMORRHAGE [None]
  - CEREBRAL THROMBOSIS [None]
  - CEREBROVASCULAR ACCIDENT [None]
  - HAEMATEMESIS [None]
  - PERSONALITY CHANGE [None]
  - PNEUMONIA ASPIRATION [None]
  - WEIGHT DECREASED [None]
